FAERS Safety Report 25944431 (Version 1)
Quarter: 2025Q4

REPORT INFORMATION
  Report Type: Spontaneous
  Country: EU (occurrence: EU)
  Receive Date: 20251021
  Receipt Date: 20251021
  Transmission Date: 20260118
  Serious: Yes (Other)
  Sender: APELLIS PHARMACEUTICALS
  Company Number: EU-BIOVITRUM-2025-NL-005813

PATIENT

DRUGS (11)
  1. PEGCETACOPLAN [Suspect]
     Active Substance: PEGCETACOPLAN
     Indication: C3 glomerulopathy
     Dosage: 54MG/ML, 2X PER WEEK (TWICE PER WEEK)
     Route: 058
  2. PEGCETACOPLAN [Suspect]
     Active Substance: PEGCETACOPLAN
     Dosage: 2 TIMES WEEKLY 1080 MG
     Dates: start: 202407, end: 202504
  3. AMLODIPINE [Concomitant]
     Active Substance: AMLODIPINE BESYLATE
     Indication: Product used for unknown indication
     Dosage: 5MG TABLET 2XDD (TWICE DAILY)
     Route: 048
  4. Colecalciferol 1a pharma [Concomitant]
     Indication: Product used for unknown indication
     Dosage: 5600.000[IU] INTERNATION UNIT(S) QD
     Route: 048
  5. DARBEPOETIN ALFA [Concomitant]
     Active Substance: DARBEPOETIN ALFA
     Indication: Product used for unknown indication
     Dosage: 40MCG/0.4ML (100MCG/ML), ELKE 14 DGN (EVERY 14 DAYS)
     Route: 058
  6. FERROUS FUMARATE [Concomitant]
     Active Substance: FERROUS FUMARATE
     Indication: Product used for unknown indication
     Dosage: 200MG TABLET 1XDD (ONCE DAILY)
     Route: 048
  7. HYDROCHLOROTHIAZIDE [Concomitant]
     Active Substance: HYDROCHLOROTHIAZIDE
     Indication: Product used for unknown indication
     Dosage: 25MG TABLET 1XDD (ONCE DAILY)
     Route: 048
  8. POLYETHYLENE GLYCOL 4000 [Concomitant]
     Active Substance: POLYETHYLENE GLYCOL 4000
     Indication: Product used for unknown indication
     Dosage: IF NEEDED, 1X PER DAY
     Route: 048
  9. MYCOPHENOLATE MOFETIL [Concomitant]
     Active Substance: MYCOPHENOLATE MOFETIL
     Indication: Product used for unknown indication
     Dosage: 500MG TABLET 1X PER DAY (ONCE DAILY)
     Route: 048
  10. MYCOPHENOLATE MOFETIL [Concomitant]
     Active Substance: MYCOPHENOLATE MOFETIL
     Dosage: 500MG TABLET 1XDD (ONCE DAILY)
     Route: 048
  11. ACETAMINOPHEN [Concomitant]
     Active Substance: ACETAMINOPHEN
     Indication: Product used for unknown indication
     Dosage: 1000MG TABLET, IF NEEDED, 3X PER DAY
     Route: 048

REACTIONS (4)
  - Renal disorder [Unknown]
  - Off label use [Recovered/Resolved]
  - Respiratory syncytial virus infection [Unknown]
  - Glomerulonephritis membranoproliferative [Unknown]

NARRATIVE: CASE EVENT DATE: 20240701
